FAERS Safety Report 17199648 (Version 2)
Quarter: 2022Q1

REPORT INFORMATION
  Report Type: Spontaneous
  Country: GR (occurrence: GR)
  Receive Date: 20191226
  Receipt Date: 20220224
  Transmission Date: 20220423
  Serious: Yes (Hospitalization, Other)
  Sender: FDA-Public Use
  Company Number: GR-SUN PHARMACEUTICAL INDUSTRIES LTD-2019R1-231490

PATIENT
  Age: 65 Year
  Sex: Female

DRUGS (2)
  1. CAPECITABINE [Interacting]
     Active Substance: CAPECITABINE
     Indication: Breast cancer metastatic
     Dosage: 1000 MILLIGRAM/SQ. METER, BID
     Route: 065
  2. BRIVUDINE [Interacting]
     Active Substance: BRIVUDINE
     Indication: Herpes zoster
     Dosage: 125 MILLIGRAM, DAILY
     Route: 065

REACTIONS (7)
  - Drug interaction [Unknown]
  - Rash [Recovered/Resolved]
  - Stomatitis [Recovered/Resolved]
  - Pancytopenia [Recovered/Resolved]
  - Diarrhoea [Recovered/Resolved]
  - Palmar-plantar erythrodysaesthesia syndrome [Recovered/Resolved]
  - Asthenia [Recovered/Resolved]
